FAERS Safety Report 11423535 (Version 1)
Quarter: 2015Q3

REPORT INFORMATION
  Report Type: Spontaneous
  Country: US (occurrence: US)
  Receive Date: 20150827
  Receipt Date: 20150827
  Transmission Date: 20151125
  Serious: No
  Sender: FDA-Public Use
  Company Number: US-JNJFOC-20150102913

PATIENT
  Age: 18 Month
  Sex: Female
  Weight: 9.53 kg

DRUGS (1)
  1. CHILDRENS MOTRIN [Suspect]
     Active Substance: IBUPROFEN
     Indication: PYREXIA
     Dosage: TAKEN ALTERNATELY WITH 5ML OF PARACETAMOL EVERY 6 HOURS
     Route: 065

REACTIONS (1)
  - Wrong technique in product usage process [Unknown]
